FAERS Safety Report 4865662-3 (Version None)
Quarter: 2005Q4

REPORT INFORMATION
  Report Type: 
  Country: None (occurrence: None)
  Receive Date: 20051220
  Receipt Date: 20051130
  Transmission Date: 20060501
  Serious: Yes (Hospitalization, Other)
  Sender: FDA-Public Use
  Company Number: US200512000037

PATIENT
  Age: 67 Year
  Sex: Female

DRUGS (2)
  1. HUMULIN 70/30 [Suspect]
     Dosage: 50  + 40U, EACH MORNING, UNK
     Dates: start: 19960101
  2. HUMULIN 70/30 [Suspect]
     Dosage: 50  + 40U, EACH MORNING, UNK
     Dates: start: 19960101

REACTIONS (5)
  - ABASIA [None]
  - BLOOD GLUCOSE INCREASED [None]
  - NEUROPATHY PERIPHERAL [None]
  - ROAD TRAFFIC ACCIDENT [None]
  - ROSAI-DORFMAN SYNDROME [None]
